FAERS Safety Report 5914347-0 (Version None)
Quarter: 2008Q4

REPORT INFORMATION
  Report Type: 
  Country: None (occurrence: None)
  Receive Date: 20081007
  Receipt Date: 20080925
  Transmission Date: 20090506
  Serious: Yes (Hospitalization)
  Sender: FDA-Public Use
  Company Number: 2008BI020625

PATIENT
  Age: 53 Year
  Sex: Female
  Weight: 90.7194 kg

DRUGS (4)
  1. AVONEX [Suspect]
     Indication: MULTIPLE SCLEROSIS
     Dosage: IM, 30 UG; QW; IM
     Route: 030
     Dates: start: 20030707
  2. AVONEX [Suspect]
     Indication: MULTIPLE SCLEROSIS
     Dosage: IM, 30 UG; QW; IM
     Route: 030
     Dates: start: 20030830
  3. PROVIGIL (CON.) [Concomitant]
  4. . [Concomitant]

REACTIONS (13)
  - ARTHRITIS [None]
  - BACK PAIN [None]
  - BURSITIS [None]
  - DEPRESSION [None]
  - GAIT DISTURBANCE [None]
  - HIP ARTHROPLASTY [None]
  - HYPERLIPIDAEMIA [None]
  - HYPERTENSION [None]
  - INCISION SITE PAIN [None]
  - LIVER FUNCTION TEST ABNORMAL [None]
  - POLLAKIURIA [None]
  - TENDONITIS [None]
  - URINARY INCONTINENCE [None]
